FAERS Safety Report 7929631-9 (Version None)
Quarter: 2011Q4

REPORT INFORMATION
  Report Type: 
  Country: None (occurrence: None)
  Receive Date: 20111116
  Receipt Date: 20111024
  Transmission Date: 20120403
  Serious: Yes (Life-Threatening, Hospitalization)
  Sender: FDA-Public Use
  Company Number: 54973 AE # 623

PATIENT
  Age: 16 Year
  Sex: Male

DRUGS (3)
  1. DRAMAMINE [Suspect]
     Indication: NAUSEA
     Dosage: 1 BOTTLE
  2. DRAMAMINE [Suspect]
     Indication: MOTION SICKNESS
     Dosage: 1 BOTTLE
  3. HYLAND'S NERVE TONIC [Suspect]
     Indication: STRESS
     Dosage: 2 BOTTLES

REACTIONS (1)
  - MULTIPLE DRUG OVERDOSE INTENTIONAL [None]
